FAERS Safety Report 9311024 (Version 3)
Quarter: 2013Q2

REPORT INFORMATION
  Report Type: Spontaneous
  Country: JP (occurrence: JP)
  Receive Date: 20130528
  Receipt Date: 20130606
  Transmission Date: 20140414
  Serious: Yes (Hospitalization)
  Sender: FDA-Public Use
  Company Number: JP-ELI_LILLY_AND_COMPANY-JP201305006492

PATIENT
  Age: 56 Year
  Sex: Male
  Weight: 51 kg

DRUGS (11)
  1. CYMBALTA [Suspect]
     Indication: DEPRESSION
     Dosage: 20 MG, QD
     Route: 048
     Dates: start: 20130416, end: 20130422
  2. CYMBALTA [Suspect]
     Dosage: 20 MG, BID
     Route: 048
     Dates: start: 20130423, end: 20130430
  3. GABALON [Concomitant]
     Indication: CEREBROVASCULAR DISORDER
     Dosage: 5 MG, QD
     Route: 048
     Dates: start: 20130329, end: 20130501
  4. DANTRIUM [Concomitant]
     Indication: CEREBROVASCULAR DISORDER
     Dosage: 25 MG, BID
     Route: 048
     Dates: start: 20130329, end: 20130501
  5. OLMETEC [Concomitant]
     Indication: HYPERTENSION
     Dosage: 20 MG, QD
     Route: 048
     Dates: start: 20130327
  6. TAKEPRON [Concomitant]
     Indication: PROPHYLAXIS
     Dosage: 15 MG, QD
     Route: 048
     Dates: start: 20130327, end: 20130507
  7. TANNALBIN [Concomitant]
     Indication: DIARRHOEA
     Dosage: 1 G, TID
     Route: 048
     Dates: start: 20130401
  8. BIOFERMIN R [Concomitant]
     Indication: PROPHYLAXIS
     Dosage: 1 G, TID
     Route: 048
     Dates: start: 20130402
  9. ARTIST [Concomitant]
  10. CALBLOCK [Concomitant]
  11. HANGEKOBOKUTO [Concomitant]

REACTIONS (4)
  - Agranulocytosis [Recovered/Resolved]
  - Decreased appetite [Unknown]
  - Vomiting [Unknown]
  - Dysuria [Unknown]
